FAERS Safety Report 9330047 (Version 1)
Quarter: 2013Q2

REPORT INFORMATION
  Report Type: Spontaneous
  Country: CA (occurrence: CA)
  Receive Date: 20130604
  Receipt Date: 20130604
  Transmission Date: 20140414
  Serious: Yes (Death)
  Sender: FDA-Public Use
  Company Number: CA-TEVA-409798USA

PATIENT
  Age: 31 Year
  Sex: Female
  Weight: 97 kg

DRUGS (14)
  1. CITALOPRAM [Suspect]
     Dosage: 40 MILLIGRAM DAILY;
     Route: 065
  2. CITALOPRAM [Suspect]
     Route: 065
  3. CLONAZEPAM [Suspect]
     Dosage: 4 MILLIGRAM DAILY;
     Route: 065
  4. ENALAPRIL SODIUM [Suspect]
     Dosage: 5 MILLIGRAM DAILY;
     Route: 065
  5. FUROSEMIDE [Suspect]
     Dosage: 40 MILLIGRAM DAILY;
     Route: 065
  6. GABAPENTIN [Suspect]
     Dosage: 900 MILLIGRAM DAILY;
     Route: 065
  7. NAPROXEN [Suspect]
     Dosage: 750 MILLIGRAM DAILY;
     Route: 065
  8. RABEPRAZOLE [Suspect]
     Dosage: 40 MILLIGRAM DAILY;
     Route: 065
  9. RANITIDINE [Suspect]
     Dosage: 300 MILLIGRAM DAILY;
     Route: 065
  10. TEMAZEPAM [Suspect]
     Dosage: 30 MILLIGRAM DAILY;
     Route: 065
  11. ZOPICLONE [Suspect]
     Dosage: 7.5 MILLIGRAM DAILY;
     Route: 065
  12. ELAVIL TABLET 10 MG [Suspect]
     Dosage: 20 MILLIGRAM DAILY;
     Route: 065
  13. TYLENOL W CODEINE NO 3 TAB [Suspect]
     Dosage: AS REQUIRED
     Route: 065
  14. VITAMIN D [Suspect]
     Route: 065

REACTIONS (1)
  - Toxicity to various agents [Fatal]
